FAERS Safety Report 11696341 (Version 1)
Quarter: 2015Q4

REPORT INFORMATION
  Report Type: Other
  Country: FR (occurrence: FR)
  Receive Date: 20151104
  Receipt Date: 20151104
  Transmission Date: 20160304
  Serious: Yes (Hospitalization)
  Sender: FDA-Public Use
  Company Number: FR-MYLANLABS-2015M1036359

PATIENT

DRUGS (3)
  1. MIANS?RINE MYLAN 10 MG COMPRIM? PELLICUL? [Suspect]
     Active Substance: MIANSERIN HYDROCHLORIDE
     Indication: DEPRESSION
     Dosage: 10 MG, QD
     Route: 048
     Dates: end: 20150510
  2. ENBREL [Suspect]
     Active Substance: ETANERCEPT
     Indication: RHEUMATOID ARTHRITIS
     Dosage: 1 DF, QD
     Route: 058
     Dates: start: 20120611, end: 20150710
  3. ALPRAZOLAM MYLAN 0.25 MG COMPRIM? S?CABLE [Suspect]
     Active Substance: ALPRAZOLAM
     Indication: ANXIETY
     Dosage: 0.25 MG, QD
     Route: 048
     Dates: end: 20150510

REACTIONS (9)
  - Groin abscess [None]
  - Eczema [Recovered/Resolved]
  - Joint ankylosis [None]
  - Lymphoedema [Recovered/Resolved]
  - Eczema [None]
  - Rash erythematous [Recovered/Resolved]
  - Oedema peripheral [Recovered/Resolved]
  - Dermatitis bullous [None]
  - Dysthymic disorder [None]

NARRATIVE: CASE EVENT DATE: 201507
